FAERS Safety Report 12631591 (Version 2)
Quarter: 2016Q3

REPORT INFORMATION
  Report Type: Spontaneous
  Country: US (occurrence: US)
  Receive Date: 20160808
  Receipt Date: 20160808
  Transmission Date: 20161109
  Serious: No
  Sender: FDA-Public Use
  Company Number: US-BEH-2015054837

PATIENT
  Sex: Female
  Weight: 101 kg

DRUGS (23)
  1. FERROUS SULFATE. [Concomitant]
     Active Substance: FERROUS SULFATE
  2. ZYRTEC [Concomitant]
     Active Substance: CETIRIZINE HYDROCHLORIDE
  3. OXYGEN. [Concomitant]
     Active Substance: OXYGEN
  4. DIPHENHYDRAMINE. [Concomitant]
     Active Substance: DIPHENHYDRAMINE
  5. NOVOLOG [Concomitant]
     Active Substance: INSULIN ASPART
  6. CALCIUM [Concomitant]
     Active Substance: CALCIUM
  7. SPIRIVA [Concomitant]
     Active Substance: TIOTROPIUM BROMIDE MONOHYDRATE
  8. FISH OIL [Concomitant]
     Active Substance: FISH OIL
  9. EPIPEN [Concomitant]
     Active Substance: EPINEPHRINE
     Indication: ANAPHYLACTIC REACTION
  10. VITAMIN C [Concomitant]
     Active Substance: ASCORBIC ACID
  11. SALINE [Concomitant]
     Active Substance: SODIUM CHLORIDE
  12. HYDROCORTISONE. [Concomitant]
     Active Substance: HYDROCORTISONE
  13. ADVAIR HFA [Concomitant]
     Active Substance: FLUTICASONE PROPIONATE\SALMETEROL XINAFOATE
  14. ACCOLATE [Concomitant]
     Active Substance: ZAFIRLUKAST
  15. SPIRONOLACTONE. [Concomitant]
     Active Substance: SPIRONOLACTONE
  16. PRILOSEC [Concomitant]
     Active Substance: OMEPRAZOLE MAGNESIUM
  17. ACETAMINOPHEN. [Concomitant]
     Active Substance: ACETAMINOPHEN
  18. LIDOCAINE/PRILOCAINE [Concomitant]
     Active Substance: LIDOCAINE\PRILOCAINE
  19. LANTUS [Concomitant]
     Active Substance: INSULIN GLARGINE
  20. HIZENTRA [Suspect]
     Active Substance: HUMAN IMMUNOGLOBULIN G
     Indication: IMMUNODEFICIENCY COMMON VARIABLE
     Route: 058
  21. ASPIR [Concomitant]
     Active Substance: ASPIRIN
  22. COZAAR [Concomitant]
     Active Substance: LOSARTAN POTASSIUM
  23. LEVOTHYROXINE. [Concomitant]
     Active Substance: LEVOTHYROXINE

REACTIONS (1)
  - Administration site swelling [Unknown]
